FAERS Safety Report 21375285 (Version 1)
Quarter: 2022Q3

REPORT INFORMATION
  Report Type: Report from Study
  Country: EG (occurrence: EG)
  Receive Date: 20220926
  Receipt Date: 20220926
  Transmission Date: 20221027
  Serious: Yes (Other)
  Sender: FDA-Public Use
  Company Number: EG-NOVARTISPH-NVSC2022EG212841

PATIENT
  Sex: Male

DRUGS (7)
  1. NEORAL [Suspect]
     Active Substance: CYCLOSPORINE
     Indication: Product used for unknown indication
     Dosage: 50 MG, BID (1 CAP IN THE MORNING AND ONE CAP AT NIGHT, AS A STRARTING DOSE FOR THE 1 ST MONTH)
     Route: 048
     Dates: start: 202202, end: 202206
  2. NEORAL [Suspect]
     Active Substance: CYCLOSPORINE
     Dosage: 2 DF, QD (INCREASING THE DOSE BY HCP DECISION TO BE 2 CAPS IN THE MORNING)
     Route: 065
  3. NEORAL [Suspect]
     Active Substance: CYCLOSPORINE
     Dosage: 1 DF, QD (1 CAP AT NIGHT [FOR 3 WEEKS OR 1 MONTH ONLY] AND INCREASING THE DOSE)
     Route: 065
  4. CORTIZONE 10 [Concomitant]
     Active Substance: HYDROCORTISONE
     Indication: Alopecia universalis
     Dosage: 5 MG, QD (IT^S STARTED WITH NEORAL AND STOPPED WITH IT) AND IT WILL BE STARTED AGAIN WHEN THE PATIEN
     Route: 065
  5. CORTIZONE 10 [Concomitant]
     Active Substance: HYDROCORTISONE
     Dosage: 7.5 MG, QD
     Route: 065
  6. CORTIZONE 10 [Concomitant]
     Active Substance: HYDROCORTISONE
     Dosage: 10 MG, QD
     Route: 065
  7. CORTIZONE 10 [Concomitant]
     Active Substance: HYDROCORTISONE
     Dosage: 5 MG, QD
     Route: 065

REACTIONS (5)
  - Headache [Recovered/Resolved]
  - Vomiting [Recovered/Resolved]
  - Dizziness [Recovered/Resolved]
  - Drug level decreased [Recovered/Resolved]
  - Off label use [Unknown]

NARRATIVE: CASE EVENT DATE: 20220101
